FAERS Safety Report 9822588 (Version 1)
Quarter: 2014Q1

REPORT INFORMATION
  Report Type: Spontaneous
  Country: GB (occurrence: GB)
  Receive Date: 20140116
  Receipt Date: 20140116
  Transmission Date: 20141002
  Serious: Yes (Disabling)
  Sender: FDA-Public Use
  Company Number: PHHY2014GB004119

PATIENT
  Age: 58 Year
  Sex: Male

DRUGS (3)
  1. STALEVO [Suspect]
     Indication: PARKINSON^S DISEASE
     Dosage: 175 MG, FOUR TIMES IN A DAY
     Route: 048
     Dates: start: 20111228, end: 20131209
  2. CITALOPRAM [Concomitant]
     Dosage: UNK
  3. DOMPERIDONE [Concomitant]
     Dosage: UNK

REACTIONS (3)
  - Product quality issue [Unknown]
  - Product formulation issue [Unknown]
  - No therapeutic response [Recovered/Resolved]
